FAERS Safety Report 5843764-2 (Version None)
Quarter: 2008Q3

REPORT INFORMATION
  Report Type: 
  Country: None (occurrence: None)
  Receive Date: 20080813
  Receipt Date: 20080806
  Transmission Date: 20090109
  Serious: Yes (Hospitalization)
  Sender: FDA-Public Use
  Company Number: TH-BRISTOL-MYERS SQUIBB COMPANY-14288971

PATIENT
  Age: 48 Year
  Sex: Male

DRUGS (5)
  1. BLINDED: ABILIFY TABS [Suspect]
     Indication: BIPOLAR I DISORDER
     Dosage: TILL 25JUL08 15MG/DAY DURATION:94 DAYS FROM 26JUL2008 DOSE WAS INCREASED TO 30MG/DAY
     Route: 048
     Dates: start: 20080423
  2. BLINDED: PLACEBO [Suspect]
  3. VALPROATE SODIUM [Suspect]
     Indication: BIPOLAR I DISORDER
     Dosage: 20MAR08-27JUL08:1500MG DURATION:130DAYS INCREASED TO 2000MG FROM 28JUL08-ONGOING
     Route: 048
     Dates: start: 20080320
  4. LORAZEPAM [Concomitant]
     Dates: start: 20080320
  5. ZOLPIDEM [Concomitant]
     Dates: start: 20080320

REACTIONS (1)
  - MANIA [None]
